FAERS Safety Report 5023484-7 (Version None)
Quarter: 2006Q2

REPORT INFORMATION
  Report Type: 
  Country: None (occurrence: None)
  Receive Date: 20060606
  Receipt Date: 20060529
  Transmission Date: 20061013
  Serious: Yes (Hospitalization)
  Sender: FDA-Public Use
  Company Number: DEWYE657929MAY06

PATIENT
  Age: 45 Year
  Sex: Female

DRUGS (4)
  1. VENLAFAXINE HCL [Suspect]
     Dosage: 50 CAPSULES (OVERDOSE AMOUNT 3750 MG) ORAL
     Route: 048
     Dates: start: 20060528, end: 20060528
  2. DOXEPIN HCL [Suspect]
     Dosage: 60 TABLETS (OVERDOSE AMOUNT 3000 MG) ORAL
     Route: 048
     Dates: start: 20060528, end: 20060528
  3. KLOSTERFRAU MELISSENGEIST            (ETHANOL/HERBAL EXTRACTS) [Suspect]
     Dosage: 1 BOTTLE ORAL
     Route: 048
     Dates: start: 20060528, end: 20060528
  4. ZOLPIDEM TARTRATE [Suspect]
     Dosage: 20 TABLETS (OVERDOSE AMOUNT 200 MG) ORAL
     Route: 048
     Dates: start: 20060528, end: 20060528

REACTIONS (4)
  - COMA [None]
  - HYPOTENSION [None]
  - MULTIPLE DRUG OVERDOSE INTENTIONAL [None]
  - RESPIRATORY FAILURE [None]
